FAERS Safety Report 6026448-X (Version None)
Quarter: 2009Q1

REPORT INFORMATION
  Report Type: 
  Country: None (occurrence: None)
  Receive Date: 20090102
  Receipt Date: 20081229
  Transmission Date: 20090719
  Serious: Yes (Other)
  Sender: FDA-Public Use
  Company Number: US-PFIZER INC-2008160815

PATIENT
  Sex: Male
  Weight: 102.05 kg

DRUGS (4)
  1. LIPITOR [Suspect]
     Indication: BLOOD CHOLESTEROL INCREASED
     Route: 048
     Dates: start: 20040101, end: 20040101
  2. GLIPIZIDE [Concomitant]
     Indication: DIABETES MELLITUS
  3. BISOPROLOL FUMARATE [Concomitant]
     Indication: HYPERTENSION
  4. NIACIN [Concomitant]

REACTIONS (6)
  - ABASIA [None]
  - FEELING ABNORMAL [None]
  - MUSCLE SPASMS [None]
  - NAUSEA [None]
  - PAIN IN EXTREMITY [None]
  - PARALYSIS [None]
